FAERS Safety Report 21875907 (Version 1)
Quarter: 2023Q1

REPORT INFORMATION
  Report Type: Other
  Country: JP (occurrence: None)
  Receive Date: 20230118
  Receipt Date: 20230118
  Transmission Date: 20230417
  Serious: Yes (Hospitalization)
  Sender: FDA-Public Use
  Company Number: JP-MLMSERVICE-20190903-1935059-1

PATIENT
  Age: 27 Year
  Sex: Male

DRUGS (16)
  1. MYCOPHENOLATE MOFETIL [Suspect]
     Active Substance: MYCOPHENOLATE MOFETIL
     Indication: Graft versus host disease
     Route: 065
  2. MYCOPHENOLATE MOFETIL [Suspect]
     Active Substance: MYCOPHENOLATE MOFETIL
     Indication: Graft versus host disease in gastrointestinal tract
     Route: 065
  3. TACROLIMUS [Suspect]
     Active Substance: TACROLIMUS
     Indication: Graft versus host disease
     Route: 065
  4. TACROLIMUS [Suspect]
     Active Substance: TACROLIMUS
     Indication: Graft versus host disease in skin
  5. INFLIXIMAB [Suspect]
     Active Substance: INFLIXIMAB
     Indication: Graft versus host disease
     Route: 042
  6. INFLIXIMAB [Suspect]
     Active Substance: INFLIXIMAB
     Indication: Graft versus host disease in skin
  7. THYMOGLOBULIN [Suspect]
     Active Substance: LAPINE T-LYMPHOCYTE IMMUNE GLOBULIN
     Indication: Graft versus host disease
     Route: 065
  8. THYMOGLOBULIN [Suspect]
     Active Substance: LAPINE T-LYMPHOCYTE IMMUNE GLOBULIN
     Indication: Graft versus host disease in skin
  9. BUDESONIDE [Suspect]
     Active Substance: BUDESONIDE
     Indication: Graft versus host disease
     Dosage: ON DAY 92
     Route: 048
  10. METHYLPREDNISOLONE [Suspect]
     Active Substance: METHYLPREDNISOLONE
     Indication: Graft versus host disease
     Dosage: PULSED ON DAY 50
     Route: 040
  11. METHYLPREDNISOLONE [Suspect]
     Active Substance: METHYLPREDNISOLONE
     Indication: Graft versus host disease in skin
     Route: 042
  12. METHYLPREDNISOLONE [Suspect]
     Active Substance: METHYLPREDNISOLONE
     Route: 042
  13. RUXOLITINIB [Concomitant]
     Active Substance: RUXOLITINIB
     Indication: Graft versus host disease
     Dosage: ON  104
     Route: 048
  14. RUXOLITINIB [Concomitant]
     Active Substance: RUXOLITINIB
     Indication: Graft versus host disease in skin
  15. GANCICLOVIR [Concomitant]
     Active Substance: GANCICLOVIR
     Indication: Cytomegalovirus colitis
  16. SULFAMETHOXAZOLE\TRIMETHOPRIM [Concomitant]
     Active Substance: SULFAMETHOXAZOLE\TRIMETHOPRIM

REACTIONS (4)
  - Gastrointestinal disorder [Unknown]
  - Human herpesvirus 6 encephalitis [Unknown]
  - Pneumocystis jirovecii infection [Unknown]
  - Generalised tonic-clonic seizure [Unknown]
